FAERS Safety Report 24316551 (Version 4)
Quarter: 2024Q4

REPORT INFORMATION
  Report Type: Spontaneous
  Country: DE (occurrence: DE)
  Receive Date: 20240913
  Receipt Date: 20241107
  Transmission Date: 20250115
  Serious: Yes (Hospitalization, Other)
  Sender: AUROBINDO
  Company Number: DE-BRISTOL-MYERS SQUIBB COMPANY-2024-084984

PATIENT
  Age: 50 Year
  Sex: Male
  Weight: 64 kg

DRUGS (13)
  1. CARBOPLATIN [Suspect]
     Active Substance: CARBOPLATIN
     Indication: Non-small cell lung cancer
     Dosage: 666 MILLIGRAM, EVERY 3 WEK
     Route: 042
     Dates: start: 20240618
  2. CARBOPLATIN [Suspect]
     Active Substance: CARBOPLATIN
     Dosage: 136 MILLIGRAM, EVERY 3 WEEKS
     Route: 042
     Dates: start: 20240523
  3. PEMETREXED [Suspect]
     Active Substance: PEMETREXED
     Indication: Non-small cell lung cancer
     Dosage: 910 MILLIGRAM
     Route: 065
     Dates: start: 20240523
  4. YERVOY [Suspect]
     Active Substance: IPILIMUMAB
     Indication: Non-small cell lung cancer
     Dosage: 64 MILLIGRAM, EVERY 6 WEEK
     Route: 042
     Dates: start: 20240523
  5. OPDIVO [Suspect]
     Active Substance: NIVOLUMAB
     Indication: Non-small cell lung cancer
     Dosage: 360 MILLIGRAM, EVERY 3 WEEK
     Route: 042
     Dates: start: 20240523
  6. CISPLATIN [Suspect]
     Active Substance: CISPLATIN
     Indication: Non-small cell lung cancer
     Dosage: 136 MILLIGRAM, EVERY 3 WEEK
     Route: 042
     Dates: start: 20240523, end: 20240523
  7. DEXAMETHASONE [Concomitant]
     Active Substance: DEXAMETHASONE
     Indication: Prophylaxis
     Dosage: UNK
     Route: 065
     Dates: start: 20240523
  8. DEXAMETHASONE [Concomitant]
     Active Substance: DEXAMETHASONE
     Dosage: UNK
     Route: 065
     Dates: start: 20240524
  9. APREPITANT [Concomitant]
     Active Substance: APREPITANT
     Indication: Prophylaxis
     Dosage: UNK
     Route: 065
     Dates: start: 20240523
  10. APREPITANT [Concomitant]
     Active Substance: APREPITANT
     Dosage: UNK
     Route: 065
     Dates: start: 20240524
  11. GRANISETRON [Concomitant]
     Active Substance: GRANISETRON
     Indication: Prophylaxis
     Dosage: UNK
     Route: 065
     Dates: start: 20240523
  12. Jonosteril [Concomitant]
     Indication: Product used for unknown indication
     Dosage: UNK
     Route: 065
     Dates: start: 20240528, end: 20240528
  13. Jonosteril [Concomitant]
     Dosage: UNK
     Route: 065
     Dates: start: 20240624, end: 20240624

REACTIONS (10)
  - Mucosal inflammation [Recovered/Resolved]
  - Hypokalaemia [Recovering/Resolving]
  - Pruritus [Recovered/Resolved]
  - Nausea [Recovered/Resolved]
  - Decreased appetite [Unknown]
  - Headache [Recovered/Resolved]
  - Vomiting [Recovered/Resolved]
  - Diarrhoea [Recovered/Resolved]
  - Insomnia [Recovered/Resolved]
  - Joint effusion [Recovering/Resolving]

NARRATIVE: CASE EVENT DATE: 20240527
